FAERS Safety Report 8303802-4 (Version None)
Quarter: 2012Q2

REPORT INFORMATION
  Report Type: 
  Country: None (occurrence: None)
  Receive Date: 20120423
  Receipt Date: 20120413
  Transmission Date: 20120825
  Serious: Yes (Hospitalization)
  Sender: FDA-Public Use
  Company Number: PHHY2011AR112325

PATIENT
  Sex: Female

DRUGS (3)
  1. EXELON [Suspect]
     Dosage: 4.6 MG/24 HS
     Route: 062
     Dates: start: 20120320
  2. EXELON [Suspect]
     Indication: PARKINSON'S DISEASE
     Dosage: 4.6 MG/24 HS
     Route: 062
     Dates: start: 20120107, end: 20120116
  3. EXELON [Suspect]
     Indication: COGNITIVE DISORDER
     Dosage: 4.6 MG/24 HS
     Route: 062
     Dates: start: 20111208, end: 20111221

REACTIONS (2)
  - EATING DISORDER [None]
  - COGNITIVE DISORDER [None]
